FAERS Safety Report 5582024-4 (Version None)
Quarter: 2007Q4

REPORT INFORMATION
  Report Type: 
  Country: None (occurrence: None)
  Receive Date: 20071130
  Receipt Date: 20070806
  Transmission Date: 20080405
  Serious: No
  Sender: FDA-Public Use
  Company Number: US200705005121

PATIENT
  Age: 64 Year
  Sex: Male
  Weight: 130.2 kg

DRUGS (4)
  1. BYETTA [Suspect]
     Indication: TYPE 2 DIABETES MELLITUS
     Dosage: 5 UG, 2/D, SUBCUTANEOUS
     Route: 058
     Dates: start: 20070401
  2. BYETTA [Suspect]
     Dosage: 10 UG, 2/D,
     Dates: start: 20070101
  3. AVANDIA [Concomitant]
  4. GLIPIZIDE [Concomitant]

REACTIONS (6)
  - BLOOD GLUCOSE DECREASED [None]
  - DECREASED APPETITE [None]
  - HUNGER [None]
  - HYPERHIDROSIS [None]
  - TREMOR [None]
  - WEIGHT INCREASED [None]
